FAERS Safety Report 4688906-X (Version None)
Quarter: 2005Q2

REPORT INFORMATION
  Report Type: 
  Country: None (occurrence: None)
  Receive Date: 20050610
  Receipt Date: 20050530
  Transmission Date: 20051028
  Serious: Yes (Other)
  Sender: FDA-Public Use
  Company Number: 2005080901

PATIENT
  Age: 19 Year
  Sex: Male
  Weight: 79.3795 kg

DRUGS (1)
  1. LUDEN'S (METHOL, PECTIN) [Suspect]
     Dosage: UNSPECIFIED, ORAL TOPICAL
     Route: 048
     Dates: start: 19950101

REACTIONS (1)
  - DRUG DEPENDENCE [None]
